FAERS Safety Report 6930510-4 (Version None)
Quarter: 2010Q3

REPORT INFORMATION
  Report Type: 
  Country: None (occurrence: None)
  Receive Date: 20100818
  Receipt Date: 20100811
  Transmission Date: 20110219
  Serious: Yes (Hospitalization, Other)
  Sender: FDA-Public Use
  Company Number: A0856384A

PATIENT
  Age: 6 Year
  Sex: Male
  Weight: 38.6 kg

DRUGS (8)
  1. TOPOTECAN [Suspect]
     Indication: NEOPLASM
  2. CYCLOPHOSPHAMIDE [Suspect]
     Indication: NEOPLASM
  3. BACTRIM [Suspect]
     Dates: start: 20100113, end: 20100310
  4. MORPHINE [Suspect]
  5. TRIAL MEDICATION [Suspect]
     Indication: NEOPLASM
  6. RADIATION [Suspect]
  7. NEUPOGEN [Suspect]
  8. CEFEPIME [Suspect]

REACTIONS (5)
  - FEBRILE NEUTROPENIA [None]
  - LYMPHOPENIA [None]
  - NEUTROPENIA [None]
  - PAIN IN EXTREMITY [None]
  - THROMBOCYTOPENIA [None]
